FAERS Safety Report 21226863 (Version 1)
Quarter: 2022Q3

REPORT INFORMATION
  Report Type: Spontaneous
  Country: US (occurrence: US)
  Receive Date: 20220818
  Receipt Date: 20220818
  Transmission Date: 20221026
  Serious: No
  Sender: FDA-Public Use
  Company Number: US-ELI_LILLY_AND_COMPANY-US202208008205

PATIENT
  Sex: Female

DRUGS (1)
  1. BAQSIMI [Suspect]
     Active Substance: GLUCAGON
     Indication: Hypoglycaemia
     Dosage: 3 MG, UNKNOWN
     Route: 045

REACTIONS (2)
  - Nasal septum deviation [Recovered/Resolved]
  - Nasal discomfort [Recovered/Resolved]
